FAERS Safety Report 22692852 (Version 4)
Quarter: 2024Q3

REPORT INFORMATION
  Report Type: Spontaneous
  Country: US (occurrence: US)
  Receive Date: 20230711
  Receipt Date: 20240722
  Transmission Date: 20241017
  Serious: No
  Sender: ASTELLAS
  Company Number: US-ASTELLAS-2023US001698

PATIENT
  Age: 82 Year
  Sex: Female

DRUGS (2)
  1. MYRBETRIQ [Suspect]
     Active Substance: MIRABEGRON
     Indication: Enuresis
     Dosage: 25 MG, ONCE DAILY FOR 3 WEEKS
     Route: 065
     Dates: start: 202212
  2. MYRBETRIQ [Suspect]
     Active Substance: MIRABEGRON
     Indication: Enuresis
     Dosage: 50 MG, ONCE DAILY (FOR 4 WEEKS)
     Route: 065
     Dates: start: 202301

REACTIONS (7)
  - Rhinorrhoea [Unknown]
  - Paranasal sinus discomfort [Unknown]
  - Arthralgia [Unknown]
  - Back pain [Unknown]
  - Headache [Unknown]
  - Drug ineffective for unapproved indication [Unknown]
  - Off label use [Unknown]

NARRATIVE: CASE EVENT DATE: 20221201
